FAERS Safety Report 13734466 (Version 4)
Quarter: 2017Q3

REPORT INFORMATION
  Report Type: Report from Study
  Country: US (occurrence: US)
  Receive Date: 20170709
  Receipt Date: 20170919
  Transmission Date: 20171127
  Serious: No
  Sender: FDA-Public Use
  Company Number: US-ALEXION PHARMACEUTICALS INC.-A201707291

PATIENT
  Sex: Female

DRUGS (1)
  1. STRENSIQ [Suspect]
     Active Substance: ASFOTASE ALFA
     Indication: HYPOPHOSPHATASIA
     Route: 058

REACTIONS (15)
  - Blood insulin abnormal [Unknown]
  - Blood thyroid stimulating hormone abnormal [Unknown]
  - Liver function test increased [Not Recovered/Not Resolved]
  - Blood alkaline phosphatase increased [Recovering/Resolving]
  - Blood urea nitrogen/creatinine ratio increased [Unknown]
  - Alanine aminotransferase increased [Recovering/Resolving]
  - Blood cholesterol abnormal [Unknown]
  - Blood triglycerides abnormal [Unknown]
  - Aspartate aminotransferase increased [Unknown]
  - Vitamin D abnormal [Unknown]
  - Carbon dioxide abnormal [Unknown]
  - Blood creatinine abnormal [Unknown]
  - Blood corticotrophin abnormal [Unknown]
  - Blood phosphorus increased [Unknown]
  - Anti-thyroid antibody [Unknown]

NARRATIVE: CASE EVENT DATE: 20170821
